FAERS Safety Report 4263662-8 (Version None)
Quarter: 2004Q1

REPORT INFORMATION
  Report Type: 
  Country: None (occurrence: None)
  Receive Date: 20040102
  Receipt Date: 20031216
  Transmission Date: 20041129
  Serious: Yes (Disabling)
  Sender: FDA-Public Use
  Company Number: ATO-03-0815

PATIENT
  Age: 84 Year
  Sex: Male

DRUGS (2)
  1. TRISENOX [Suspect]
     Indication: MYELODYSPLASTIC SYNDROME
     Dosage: 16 MG (16 MG, 12D/MONTH), IVI
     Route: 042
     Dates: start: 20030501, end: 20030701
  2. DESFERAL [Suspect]
     Indication: SERUM FERRITIN INCREASED
     Dosage: 2000 MG (2000 MG), IVI
     Route: 042
     Dates: start: 20020201

REACTIONS (6)
  - BLINDNESS [None]
  - MACULAR DEGENERATION [None]
  - NEUROPATHY [None]
  - NEUTROPENIA [None]
  - RETINOPATHY [None]
  - SERUM FERRITIN INCREASED [None]
